FAERS Safety Report 9416962 (Version 1)
Quarter: 2013Q3

REPORT INFORMATION
  Report Type: Spontaneous
  Country: JP (occurrence: JP)
  Receive Date: 20130719
  Receipt Date: 20130719
  Transmission Date: 20140515
  Serious: Yes (Other)
  Sender: FDA-Public Use
  Company Number: DSJ-2013-15912

PATIENT
  Age: 76 Year
  Sex: Male

DRUGS (3)
  1. OLMETEC [Suspect]
     Indication: PRODUCT USED FOR UNKNOWN INDICATION
  2. FLUITRAN [Suspect]
     Indication: PRODUCT USED FOR UNKNOWN INDICATION
     Route: 048
     Dates: start: 20071031, end: 20071217
  3. AMLODIPINE (AMLODIPINE)(TABLET)(AMLODIPINE) [Concomitant]

REACTIONS (1)
  - Angina pectoris [None]
